FAERS Safety Report 16367660 (Version 5)
Quarter: 2019Q3

REPORT INFORMATION
  Report Type: Spontaneous
  Country: US (occurrence: US)
  Receive Date: 20190529
  Receipt Date: 20190729
  Transmission Date: 20191004
  Serious: Yes (Other)
  Sender: FDA-Public Use
  Company Number: US-PFIZER INC-2019223005

PATIENT
  Age: 64 Year
  Sex: Male
  Weight: 77 kg

DRUGS (5)
  1. NEURONTIN [Suspect]
     Active Substance: GABAPENTIN
     Indication: PAIN IN EXTREMITY
     Dosage: 600 MG, 4X/DAY
     Route: 048
  2. NEURONTIN [Suspect]
     Active Substance: GABAPENTIN
     Indication: BACK PAIN
     Dosage: UNK (1 IN MORNING, 3-4 TIMES A DAY)
  3. NEURONTIN [Suspect]
     Active Substance: GABAPENTIN
     Indication: NEURALGIA
     Dosage: 2 DF, WEEKLY
  4. NEURONTIN [Suspect]
     Active Substance: GABAPENTIN
     Indication: ARTHRALGIA
  5. NEURONTIN [Suspect]
     Active Substance: GABAPENTIN
     Indication: NECK PAIN
     Dosage: 3 DF, WEEKLY

REACTIONS (6)
  - Off label use [Unknown]
  - Product use in unapproved indication [Unknown]
  - Seborrhoea [Unknown]
  - Weight decreased [Unknown]
  - Insomnia [Recovered/Resolved]
  - Amnesia [Unknown]

NARRATIVE: CASE EVENT DATE: 2019
